FAERS Safety Report 9011604 (Version 2)
Quarter: 2013Q1

REPORT INFORMATION
  Report Type: Spontaneous
  Country: JP (occurrence: JP)
  Receive Date: 20130108
  Receipt Date: 20130117
  Transmission Date: 20140127
  Serious: Yes (Other)
  Sender: FDA-Public Use
  Company Number: JP-SANOFI-AVENTIS-2013SA001312

PATIENT
  Sex: 0

DRUGS (3)
  1. CISPLATIN [Suspect]
     Indication: OESOPHAGEAL CARCINOMA
     Dosage: GIVEN AT DAY 1, CYCLE WAS PERFORMED EVERY 3 TO 4 WEEKS
     Route: 065
  2. FLUOROURACIL [Suspect]
     Indication: OESOPHAGEAL CARCINOMA
     Dosage: GIVEN FROM DAY 1 TO 5, CYCLE WAS PERFORMED EVERY 3 TO 4 WEEKS
     Route: 065
  3. DOCETAXEL [Suspect]
     Indication: OESOPHAGEAL CARCINOMA
     Dosage: GIVEN AT DAY 1, CYCLE WAS PERFORMED EVERY 3 TO 4 WEEKS
     Route: 065

REACTIONS (1)
  - Cardiac arrest [Unknown]
